FAERS Safety Report 15318009 (Version 3)
Quarter: 2020Q3

REPORT INFORMATION
  Report Type: Spontaneous
  Country: DE (occurrence: DE)
  Receive Date: 20180824
  Receipt Date: 20200703
  Transmission Date: 20201102
  Serious: Yes (Hospitalization, Other)
  Sender: FDA-Public Use
  Company Number: PHHY2018DE077923

PATIENT
  Age: 59 Year
  Sex: Female
  Weight: 62 kg

DRUGS (2)
  1. PROGESTERONE. [Suspect]
     Active Substance: PROGESTERONE
     Indication: PREVENTION OF ENDOMETRIAL HYPERPLASIA
     Dosage: 100 MG, QD, FOR YEARS
     Route: 048
  2. ESTRADIOL. [Suspect]
     Active Substance: ESTRADIOL
     Indication: HORMONE REPLACEMENT THERAPY
     Dosage: 1 DF, QD (1 PUFF  DAILY) FOR YEARS)
     Route: 062

REACTIONS (3)
  - Pulmonary embolism [Recovering/Resolving]
  - Pelvic venous thrombosis [Recovering/Resolving]
  - Diverticular perforation [Recovered/Resolved]

NARRATIVE: CASE EVENT DATE: 201805
